FAERS Safety Report 7549634-6 (Version None)
Quarter: 2011Q2

REPORT INFORMATION
  Report Type: 
  Country: None (occurrence: None)
  Receive Date: 20110615
  Receipt Date: 20110607
  Transmission Date: 20111010
  Serious: Yes (Life-Threatening, Hospitalization)
  Sender: FDA-Public Use
  Company Number: JP-JNJFOC-20091008761

PATIENT
  Sex: Female
  Weight: 67 kg

DRUGS (5)
  1. PROMAC (POLAPREZINC) [Concomitant]
     Indication: STOMATITIS
     Route: 048
     Dates: start: 20090626, end: 20090730
  2. ALLOID G [Concomitant]
     Indication: STOMATITIS
     Route: 065
     Dates: start: 20090626, end: 20090730
  3. STEROIDS NOS [Concomitant]
     Indication: PALMAR-PLANTAR ERYTHRODYSAESTHESIA SYNDROME
     Route: 065
  4. DOXORUBICIN HCL [Suspect]
     Dosage: CYCLE 2, 80 MG
     Route: 042
     Dates: start: 20090708, end: 20090708
  5. DOXORUBICIN HCL [Suspect]
     Indication: OVARIAN CANCER RECURRENT
     Dosage: CYCLE 1, 80 MG
     Route: 042
     Dates: start: 20090610, end: 20090610

REACTIONS (2)
  - DERMATITIS [None]
  - STOMATITIS [None]
